FAERS Safety Report 23479812 (Version 2)
Quarter: 2025Q1

REPORT INFORMATION
  Report Type: Spontaneous
  Country: US (occurrence: US)
  Receive Date: 20240205
  Receipt Date: 20250227
  Transmission Date: 20250409
  Serious: No
  Sender: UCB
  Company Number: US-UCBSA-2023035588

PATIENT
  Sex: Male

DRUGS (2)
  1. KEPPRA [Suspect]
     Active Substance: LEVETIRACETAM
     Indication: Seizure
  2. BRIVIACT [Concomitant]
     Active Substance: BRIVARACETAM
     Indication: Seizure

REACTIONS (1)
  - Drug hypersensitivity [Unknown]
